FAERS Safety Report 10164730 (Version 1)
Quarter: 2014Q2

REPORT INFORMATION
  Report Type: Spontaneous
  Country: US (occurrence: US)
  Receive Date: 20140510
  Receipt Date: 20140510
  Transmission Date: 20141212
  Serious: No
  Sender: FDA-Public Use
  Company Number: US-BRISTOL-MYERS SQUIBB COMPANY-19517945

PATIENT
  Age: 58 Year
  Sex: Female
  Weight: 145.12 kg

DRUGS (4)
  1. BYETTA [Suspect]
     Indication: TYPE 2 DIABETES MELLITUS
     Dates: start: 2005
  2. LANTUS [Concomitant]
     Dosage: 1DF:100 UNITS
     Route: 058
  3. HUMALOG [Concomitant]
  4. INSULIN SLIDING SCALE [Concomitant]
     Route: 058

REACTIONS (2)
  - Nausea [Recovered/Resolved]
  - Dizziness [Recovered/Resolved]
